FAERS Safety Report 5856310-4 (Version None)
Quarter: 2008Q3

REPORT INFORMATION
  Report Type: 
  Country: None (occurrence: None)
  Receive Date: 20080821
  Receipt Date: 20080821
  Transmission Date: 20090109
  Serious: Yes (Hospitalization)
  Sender: FDA-Public Use
  Company Number: None

PATIENT
  Sex: Male
  Weight: 131 kg

DRUGS (7)
  1. TEMOZOLOMIDE [Suspect]
     Indication: GLIOBLASTOMA MULTIFORME
     Dosage: 200MG/M2 DAYS 1-5
     Dates: start: 20080711, end: 20080715
  2. IRINOTECAN HCL [Suspect]
     Indication: GLIOBLASTOMA MULTIFORME
     Dosage: 125MG/M2
     Dates: start: 20080711, end: 20080725
  3. BEVACIZUMAB [Suspect]
     Indication: GLIOBLASTOMA MULTIFORME
     Dosage: 10MG/KG
     Dates: start: 20080711, end: 20080725
  4. DEXAMETHASONE TAB [Concomitant]
  5. PROTONIX [Concomitant]
  6. NORVASC [Concomitant]
  7. KEPPRA [Concomitant]

REACTIONS (1)
  - PULMONARY EMBOLISM [None]
